FAERS Safety Report 4669094-2 (Version None)
Quarter: 2005Q2

REPORT INFORMATION
  Report Type: 
  Country: None (occurrence: None)
  Receive Date: 20050519
  Receipt Date: 20050509
  Transmission Date: 20051028
  Serious: Yes (Death, Life-Threatening, Hospitalization)
  Sender: FDA-Public Use
  Company Number: 2003004189

PATIENT
  Age: 50 Year
  Sex: Male
  Weight: 69 kg

DRUGS (10)
  1. VFEND [Suspect]
     Indication: ILL-DEFINED DISORDER
     Dosage: 800 MG (400 MG BID ORAL)
     Route: 048
     Dates: start: 20021227, end: 20021231
  2. CYTARABINE [Suspect]
     Indication: ACUTE LEUKAEMIA
     Dosage: 2600 DAILY INTRAVENOUS
     Route: 042
     Dates: start: 20021227, end: 20021231
  3. FLUDARABINE PHOSPHATE [Suspect]
     Indication: ACUTE MYELOID LEUKAEMIA
     Dosage: 55 MG DAILY INTRAVENOUS
     Route: 042
     Dates: start: 20021227, end: 20021231
  4. AMBISOME [Suspect]
     Indication: INFECTION
     Dosage: INTRAVENOUS
     Route: 042
     Dates: start: 20030101, end: 20030117
  5. TEICOPLANIN [Concomitant]
  6. ACYCLOVIR [Concomitant]
  7. SULFAMETHOXAZOLE + TRIMETHOPRIM [Concomitant]
  8. OMEPRAZOLE [Concomitant]
  9. RIBAVIRIN [Concomitant]
  10. CIPROFLOXACIN HCL [Concomitant]

REACTIONS (4)
  - ENDOCARDITIS [None]
  - INFECTION [None]
  - MYOCARDIAL HAEMORRHAGE [None]
  - NEUROPATHY PERIPHERAL [None]
